FAERS Safety Report 26035835 (Version 1)
Quarter: 2025Q4

REPORT INFORMATION
  Report Type: Spontaneous
  Country: US (occurrence: None)
  Receive Date: 20251112
  Receipt Date: 20251112
  Transmission Date: 20260118
  Serious: Yes (Other)
  Sender: FDA-CTU
  Company Number: None

PATIENT
  Sex: Female

DRUGS (4)
  1. CYANOCOBALAMIN [Suspect]
     Active Substance: CYANOCOBALAMIN
     Indication: Weight decreased
     Dosage: FREQUENCY : TWICE A DAY;?
     Route: 048
  2. BUPROPION [Suspect]
     Active Substance: BUPROPION
     Dosage: OTHER FREQUENCY : EVERY 24 HOURS;?
     Route: 048
  3. METFORMIN [Suspect]
     Active Substance: METFORMIN HYDROCHLORIDE
  4. ONDANSETRON [Suspect]
     Active Substance: ONDANSETRON

REACTIONS (2)
  - Seizure [None]
  - Therapy cessation [None]
